FAERS Safety Report 23471266 (Version 1)
Quarter: 2024Q1

REPORT INFORMATION
  Report Type: Spontaneous
  Country: US (occurrence: US)
  Receive Date: 20240202
  Receipt Date: 20240202
  Transmission Date: 20240409
  Serious: No
  Sender: FDA-Public Use
  Company Number: US-TARSUS PHARMACEUTICALS-TSP-US-2024-000026

PATIENT
  Age: 76 Year
  Sex: Female

DRUGS (1)
  1. XDEMVY [Suspect]
     Active Substance: LOTILANER
     Indication: Blepharitis
     Dosage: 1 DROP, BID (IN EACH EYE )
     Route: 047

REACTIONS (2)
  - Off label use [Unknown]
  - Product storage error [Unknown]
